FAERS Safety Report 23880727 (Version 1)
Quarter: 2024Q2

REPORT INFORMATION
  Report Type: Spontaneous
  Country: JP (occurrence: JP)
  Receive Date: 20240521
  Receipt Date: 20240521
  Transmission Date: 20240716
  Serious: Yes (Other)
  Sender: FDA-Public Use
  Company Number: JP-OTSUKA-2021_042921

PATIENT
  Age: 2 Year
  Sex: Male
  Weight: 13.6 kg

DRUGS (6)
  1. SAMSCA [Suspect]
     Active Substance: TOLVAPTAN
     Indication: Hyponatraemia
     Dosage: 0.15 MG/KG, SINGLE
     Route: 048
  2. SAMSCA [Suspect]
     Active Substance: TOLVAPTAN
     Indication: Inappropriate antidiuretic hormone secretion
     Dosage: 0.04MG/KG/DAY
     Route: 048
  3. SAMSCA [Suspect]
     Active Substance: TOLVAPTAN
     Dosage: 0.08MG/KG/DAY
     Route: 048
  4. SAMSCA [Suspect]
     Active Substance: TOLVAPTAN
     Dosage: 0.15 MG/KG/DAY
     Route: 048
  5. SAMSCA [Suspect]
     Active Substance: TOLVAPTAN
     Dosage: UNK
     Route: 048
  6. LEVETIRACETAM [Concomitant]
     Active Substance: LEVETIRACETAM
     Indication: Epilepsy
     Dosage: UNK
     Route: 065

REACTIONS (4)
  - Rapid correction of hyponatraemia [Recovering/Resolving]
  - Drug monitoring procedure incorrectly performed [Unknown]
  - Wrong technique in product usage process [Unknown]
  - Product administered to patient of inappropriate age [Unknown]
